FAERS Safety Report 12632087 (Version 2)
Quarter: 2016Q3

REPORT INFORMATION
  Report Type: Spontaneous
  Country: US (occurrence: US)
  Receive Date: 20160808
  Receipt Date: 20160808
  Transmission Date: 20161109
  Serious: No
  Sender: FDA-Public Use
  Company Number: US-BEH-2016061863

PATIENT
  Sex: Female
  Weight: 62 kg

DRUGS (29)
  1. PEPCID [Concomitant]
     Active Substance: FAMOTIDINE
  2. CEFDINIR. [Concomitant]
     Active Substance: CEFDINIR
  3. PULMICORT TURBUHALER [Concomitant]
     Active Substance: BUDESONIDE
  4. SINGULAIR [Concomitant]
     Active Substance: MONTELUKAST SODIUM
  5. SYMBICORT [Concomitant]
     Active Substance: BUDESONIDE\FORMOTEROL FUMARATE DIHYDRATE
  6. ACETAMINOPHEN. [Concomitant]
     Active Substance: ACETAMINOPHEN
  7. SOMA [Concomitant]
     Active Substance: CARISOPRODOL
  8. DIOVAN [Concomitant]
     Active Substance: VALSARTAN
  9. SIMVASTATIN. [Concomitant]
     Active Substance: SIMVASTATIN
  10. DIFLUCAN [Concomitant]
     Active Substance: FLUCONAZOLE
  11. ESTRADIOL. [Concomitant]
     Active Substance: ESTRADIOL
  12. DIPHENHYDRAMINE. [Concomitant]
     Active Substance: DIPHENHYDRAMINE
  13. EPIPEN [Concomitant]
     Active Substance: EPINEPHRINE
  14. PULMICORT TURBUHALER [Concomitant]
     Active Substance: BUDESONIDE
  15. DILAUDID [Concomitant]
     Active Substance: HYDROMORPHONE HYDROCHLORIDE
  16. HIZENTRA [Suspect]
     Active Substance: HUMAN IMMUNOGLOBULIN G
     Dosage: QW
     Route: 058
  17. ROCEPHIN [Concomitant]
     Active Substance: CEFTRIAXONE SODIUM
  18. SYNTHROID [Concomitant]
     Active Substance: LEVOTHYROXINE SODIUM
  19. ZOFRAN [Concomitant]
     Active Substance: ONDANSETRON HYDROCHLORIDE
  20. LEXAPRO [Concomitant]
     Active Substance: ESCITALOPRAM OXALATE
  21. COMBIVENT [Concomitant]
     Active Substance: ALBUTEROL SULFATE\IPRATROPIUM BROMIDE
  22. TOBRAMYCIN. [Concomitant]
     Active Substance: TOBRAMYCIN
  23. FENTANYL. [Concomitant]
     Active Substance: FENTANYL
  24. HIZENTRA [Suspect]
     Active Substance: HUMAN IMMUNOGLOBULIN G
     Route: 058
  25. LIDOCAINE. [Concomitant]
     Active Substance: LIDOCAINE
  26. AMLODIPINE [Concomitant]
     Active Substance: AMLODIPINE BESYLATE
  27. NEXIUM [Concomitant]
     Active Substance: ESOMEPRAZOLE MAGNESIUM
  28. HIZENTRA [Suspect]
     Active Substance: HUMAN IMMUNOGLOBULIN G
     Route: 058
  29. ACIDOPHILUS [Concomitant]
     Active Substance: LACTOBACILLUS ACIDOPHILUS

REACTIONS (1)
  - Bronchitis [Unknown]
